FAERS Safety Report 10579610 (Version 6)
Quarter: 2015Q1

REPORT INFORMATION
  Report Type: Spontaneous
  Country: US (occurrence: US)
  Receive Date: 20141112
  Receipt Date: 20150212
  Transmission Date: 20150720
  Serious: Yes (Hospitalization)
  Sender: FDA-Public Use
  Company Number: US-BAXTER-2014BAX066794

PATIENT
  Age: 75 Year
  Sex: Female

DRUGS (2)
  1. DIANEAL LOW CALCIUM PERITONEAL DIALYSIS SOLUTION WITH DEXTROSE [Suspect]
     Active Substance: CALCIUM CHLORIDE\DEXTROSE\MAGNESIUM CHLORIDE\SODIUM CHLORIDE\SODIUM LACTATE
     Indication: PERITONEAL DIALYSIS
     Route: 033
  2. DIANEAL LOW CALCIUM PERITONEAL DIALYSIS SOLUTION WITH DEXTROSE [Suspect]
     Active Substance: CALCIUM CHLORIDE\DEXTROSE\MAGNESIUM CHLORIDE\SODIUM CHLORIDE\SODIUM LACTATE
     Indication: PERITONEAL DIALYSIS
     Route: 033

REACTIONS (10)
  - Influenza [Recovering/Resolving]
  - Device failure [Unknown]
  - Peritoneal dialysis complication [Not Recovered/Not Resolved]
  - Peritoneal dialysis complication [Unknown]
  - Noninfectious peritonitis [Recovered/Resolved]
  - Pneumonia [Recovering/Resolving]
  - Procedural pain [Recovered/Resolved]
  - Feeling hot [Unknown]
  - Muscle spasms [Unknown]
  - Discomfort [Unknown]

NARRATIVE: CASE EVENT DATE: 20141231
